FAERS Safety Report 24091789 (Version 1)
Quarter: 2024Q3

REPORT INFORMATION
  Report Type: Spontaneous
  Country: ES (occurrence: ES)
  Receive Date: 20240715
  Receipt Date: 20240715
  Transmission Date: 20241016
  Serious: Yes (Other)
  Sender: BIOVITRUM
  Company Number: ES-BIOVITRUM-2024-ES-009768

PATIENT
  Sex: Female

DRUGS (1)
  1. AVATROMBOPAG [Suspect]
     Active Substance: AVATROMBOPAG
     Indication: Immune thrombocytopenia

REACTIONS (3)
  - Platelet count decreased [Unknown]
  - Autoimmune disorder [Unknown]
  - Platelet disorder [Unknown]
